FAERS Safety Report 7513951-6 (Version None)
Quarter: 2011Q2

REPORT INFORMATION
  Report Type: 
  Country: None (occurrence: None)
  Receive Date: 20110531
  Receipt Date: 20091121
  Transmission Date: 20111010
  Serious: Yes (Hospitalization, Other)
  Sender: FDA-Public Use
  Company Number: US-BAYER-200940954NA

PATIENT
  Age: 58 Year
  Sex: Male
  Weight: 68.027 kg

DRUGS (26)
  1. AMIODARONE HCL [Concomitant]
     Dosage: 400 MG
     Route: 048
     Dates: start: 20070516, end: 20070516
  2. INTEGRILIN [Concomitant]
     Dosage: UNK
     Route: 042
     Dates: start: 20070514, end: 20070517
  3. VYTORIN [Concomitant]
     Dosage: UNK
     Route: 048
     Dates: start: 19930101
  4. AVELOX [Concomitant]
  5. HEPARIN [Concomitant]
     Dosage: UNK
     Route: 042
     Dates: start: 20070514, end: 20070517
  6. ISOSORBIDE DINITRATE [Concomitant]
     Dosage: 20 MG
     Route: 048
  7. CALCIUM GLUCONATE [Concomitant]
     Dosage: UNK
     Route: 042
     Dates: start: 20070517, end: 20070517
  8. VANCOMYCIN [Concomitant]
  9. MILRINONE [Concomitant]
     Dosage: 20 MG DRIP RATE
     Route: 042
     Dates: start: 20070517, end: 20070530
  10. NIPRIDE [Concomitant]
     Dosage: 50 MG
     Route: 042
     Dates: start: 20070517, end: 20070530
  11. TRASYLOL [Suspect]
     Indication: INTRA-AORTIC BALLOON PLACEMENT
     Dosage: 200 ML LOADING DOSE
     Route: 042
     Dates: start: 20070517, end: 20070517
  12. HEPARIN SODIUM [Concomitant]
     Dosage: 10000
     Route: 042
     Dates: start: 20070517, end: 20070517
  13. LEVOPHED [Concomitant]
  14. LORELCO [Concomitant]
     Dosage: 1 CAPSULE
     Route: 048
     Dates: start: 20070514, end: 20070516
  15. ANCEF [Concomitant]
     Dosage: 1 GRAM
     Route: 042
     Dates: start: 20070517, end: 20070517
  16. TRASYLOL [Suspect]
     Indication: CORONARY REVASCULARISATION
     Dosage: 1 ML INITIAL DOSE
     Route: 042
     Dates: start: 20070517, end: 20070517
  17. PROPOFOL [Concomitant]
  18. ACETYLSALICYLIC ACID SRT [Concomitant]
     Dosage: 325 MG, QD
     Route: 048
     Dates: end: 20070517
  19. CLIDINIUM [Concomitant]
     Dosage: 1 CAPSULE
     Route: 048
     Dates: start: 20070514, end: 20070517
  20. FUROSEMIDE [Concomitant]
     Dosage: 40 MG, QD
     Route: 048
     Dates: start: 19930101
  21. LISINOPRIL [Concomitant]
     Dosage: UNK
     Route: 048
     Dates: start: 19930101
  22. PLAVIX [Concomitant]
     Dosage: 75 MG, QD
     Route: 048
     Dates: start: 19930101, end: 20070514
  23. NITROGLYCERIN [Concomitant]
     Dosage: 50MG DRIP RATE
     Route: 042
     Dates: start: 20070517, end: 20070530
  24. TOPROL-XL [Concomitant]
     Dosage: 50 MG, QD
     Route: 048
  25. DOBUTAMINE HYDROCHLORIDE [Concomitant]
     Dosage: 500 MG DRIP RATE
     Route: 042
     Dates: start: 20070517, end: 20070517
  26. REGULAR INSULIN [Concomitant]
     Dosage: 5 UNITS
     Route: 042
     Dates: start: 20070517, end: 20070522

REACTIONS (10)
  - UNEVALUABLE EVENT [None]
  - RENAL INJURY [None]
  - STRESS [None]
  - PAIN [None]
  - RENAL FAILURE [None]
  - ANXIETY [None]
  - INJURY [None]
  - FEAR [None]
  - EMOTIONAL DISTRESS [None]
  - ANHEDONIA [None]
